APPROVED DRUG PRODUCT: OXANDROLONE
Active Ingredient: OXANDROLONE
Strength: 2.5MG
Dosage Form/Route: TABLET;ORAL
Application: A077249 | Product #001
Applicant: ROXANE LABORATORIES INC
Approved: Jul 10, 2007 | RLD: No | RS: No | Type: DISCN